FAERS Safety Report 7372132-X (Version None)
Quarter: 2011Q1

REPORT INFORMATION
  Report Type: 
  Country: None (occurrence: None)
  Receive Date: 20110324
  Receipt Date: 20110316
  Transmission Date: 20110831
  Serious: Yes (Death)
  Sender: FDA-Public Use
  Company Number: CA-ROCHE-766241

PATIENT
  Sex: Female

DRUGS (14)
  1. TOCILIZUMAB [Suspect]
     Indication: RHEUMATOID ARTHRITIS
     Route: 042
     Dates: start: 20100705, end: 20101217
  2. ASAPHEN [Concomitant]
  3. DIOVAN [Concomitant]
  4. AMITRIPTYLINE [Concomitant]
  5. NEXIUM [Concomitant]
  6. CITALOPRAM [Concomitant]
  7. ACLASTA [Concomitant]
  8. HUMALOG [Concomitant]
  9. CRESTOR [Concomitant]
  10. METHOTREXATE [Concomitant]
  11. LEUCOVORIN [Concomitant]
  12. HUMULIN R [Concomitant]
  13. APO-VERAP [Concomitant]
  14. PREDNISONE [Concomitant]

REACTIONS (1)
  - DEATH [None]
